FAERS Safety Report 8499646-3 (Version None)
Quarter: 2012Q3

REPORT INFORMATION
  Report Type: 
  Country: None (occurrence: None)
  Receive Date: 20120710
  Receipt Date: 20120705
  Transmission Date: 20120928
  Serious: Yes (Death, Hospitalization)
  Sender: FDA-Public Use
  Company Number: JP-JNJFOC-20120700659

PATIENT
  Age: 83 Year
  Sex: Female

DRUGS (8)
  1. HALOPERIDOL [Suspect]
     Indication: DELUSION
     Route: 048
     Dates: start: 20110901
  2. PROMETHAZINE [Suspect]
     Indication: HALLUCINATION, VISUAL
     Route: 065
     Dates: start: 20110901
  3. IMPROMEN [Suspect]
     Indication: HALLUCINATION, VISUAL
     Route: 048
     Dates: start: 20110901
  4. IMPROMEN [Suspect]
     Indication: DELUSION
     Route: 048
     Dates: start: 20110901
  5. LUNAPRON [Suspect]
     Indication: DELUSION
     Route: 048
     Dates: start: 20110901
  6. HALOPERIDOL [Suspect]
     Indication: HALLUCINATION, VISUAL
     Route: 048
     Dates: start: 20110901
  7. PROMETHAZINE [Suspect]
     Indication: DELUSION
     Route: 065
     Dates: start: 20110901
  8. LUNAPRON [Suspect]
     Indication: HALLUCINATION, VISUAL
     Route: 048
     Dates: start: 20110901

REACTIONS (2)
  - NEUROLEPTIC MALIGNANT SYNDROME [None]
  - PNEUMONIA [None]
